FAERS Safety Report 17456056 (Version 1)
Quarter: 2020Q1

REPORT INFORMATION
  Report Type: Report from Study
  Country: US (occurrence: US)
  Receive Date: 20200225
  Receipt Date: 20200225
  Transmission Date: 20200409
  Serious: Yes (Death, Hospitalization)
  Sender: FDA-Public Use
  Company Number: US-TORRENT-00009814

PATIENT
  Age: 77 Year
  Sex: Male

DRUGS (1)
  1. VENLAFAXINE [Suspect]
     Active Substance: VENLAFAXINE HYDROCHLORIDE
     Indication: PRODUCT USED FOR UNKNOWN INDICATION
     Dosage: (EXTENDED RELEASE)
     Route: 048

REACTIONS (6)
  - Seizure [Unknown]
  - Completed suicide [Fatal]
  - Toxicity to various agents [Fatal]
  - Shock [Unknown]
  - Cardiac arrest [Fatal]
  - Sedation [Unknown]
